FAERS Safety Report 5699354-8 (Version None)
Quarter: 2008Q2

REPORT INFORMATION
  Report Type: 
  Country: None (occurrence: None)
  Receive Date: 20080404
  Receipt Date: 20080325
  Transmission Date: 20081010
  Serious: Yes (Hospitalization)
  Sender: FDA-Public Use
  Company Number: CHNY2008TR01386

PATIENT
  Age: 50 Year
  Sex: Male

DRUGS (2)
  1. XYLOMETAZOLINE HYDROCHLORIDE (NCH)(XYLOMETAZOLINE HYDROCHLORIDE) NASAL [Suspect]
     Indication: NASOPHARYNGITIS
     Dosage: BID
  2. DILTIAZEM [Concomitant]

REACTIONS (6)
  - ACUTE MYOCARDIAL INFARCTION [None]
  - ARTERIOSPASM CORONARY [None]
  - ELECTROCARDIOGRAM ST SEGMENT ABNORMAL [None]
  - HEART RATE DECREASED [None]
  - HEART RATE INCREASED [None]
  - OVERDOSE [None]
